FAERS Safety Report 16678867 (Version 2)
Quarter: 2019Q3

REPORT INFORMATION
  Report Type: Report from Study
  Country: TW (occurrence: TW)
  Receive Date: 20190807
  Receipt Date: 20190919
  Transmission Date: 20191004
  Serious: Yes (Other)
  Sender: FDA-Public Use
  Company Number: TW-INCYTE CORPORATION-2019IN007974

PATIENT

DRUGS (4)
  1. JAKAVI [Suspect]
     Active Substance: RUXOLITINIB
     Indication: MYELOFIBROSIS
     Dosage: 20 MG, DAILY
     Route: 048
     Dates: start: 20161214, end: 20170402
  2. JAKAVI [Suspect]
     Active Substance: RUXOLITINIB
     Dosage: 30 MG, DAILY
     Route: 048
     Dates: start: 20170403, end: 20180109
  3. CELECOXIB. [Concomitant]
     Active Substance: CELECOXIB
     Indication: PRODUCT USED FOR UNKNOWN INDICATION
     Route: 065
  4. JAKAVI [Suspect]
     Active Substance: RUXOLITINIB
     Dosage: 40 MG, DAILY
     Route: 048
     Dates: start: 20180110

REACTIONS (1)
  - Peptic ulcer [Recovered/Resolved]

NARRATIVE: CASE EVENT DATE: 20180911
